FAERS Safety Report 5569957-X (Version None)
Quarter: 2007Q4

REPORT INFORMATION
  Report Type: 
  Country: None (occurrence: None)
  Receive Date: 20071217
  Receipt Date: 20071206
  Transmission Date: 20080405
  Serious: Yes (Life-Threatening, Hospitalization)
  Sender: FDA-Public Use
  Company Number: GXKR2007GB10522

PATIENT
  Age: 46 Year
  Sex: Male

DRUGS (18)
  1. SIMVASTATIN [Suspect]
     Indication: HYPERLIPIDAEMIA
     Dosage: 20 MG, QD, ORAL
     Route: 048
     Dates: start: 20071016, end: 20071116
  2. FENOFIBRATE [Suspect]
     Indication: HYPERLIPIDAEMIA
     Dosage: 267 MG, QD, ORAL
     Route: 048
     Dates: start: 20070911
  3. BECLOMETHASONE DIPROPIONATE [Concomitant]
  4. CITALOPRAM HYDROBROMIDE [Concomitant]
  5. GABAPENTIN [Concomitant]
  6. GLUCOSE          (GLUCOSE) [Concomitant]
  7. INFLUENZA VACCINE         (INFLUENZA VACCINE) [Concomitant]
  8. INSULATARD NPH HUMAN [Concomitant]
  9. IPRATROPIUM BROMIDE [Concomitant]
  10. LANSOPRAZOLE [Concomitant]
  11. LISINOPRIL [Concomitant]
  12. METFORMIN                 (METFORMIN) [Concomitant]
  13. NOVORAPID           (INSULIN ASPART) [Concomitant]
  14. OLIVE OIL                      (OLEA EUROPEA OIL) [Concomitant]
  15. ACETAMINOPHEN [Concomitant]
  16. PIOGLITAZONE HCL [Concomitant]
  17. SALBUTAMOL                   (SALBUTAMOL) [Concomitant]
  18. TRAMADOL HCL [Concomitant]

REACTIONS (5)
  - ARTHRITIS BACTERIAL [None]
  - DRUG INTERACTION [None]
  - INFLUENZA LIKE ILLNESS [None]
  - JOINT SWELLING [None]
  - MYOSITIS [None]
